APPROVED DRUG PRODUCT: MEMANTINE HYDROCHLORIDE
Active Ingredient: MEMANTINE HYDROCHLORIDE
Strength: 2MG/ML
Dosage Form/Route: SOLUTION;ORAL
Application: A204033 | Product #001 | TE Code: AA
Applicant: CHARTWELL MOLECULAR HOLDINGS LLC
Approved: Oct 13, 2015 | RLD: No | RS: Yes | Type: RX